FAERS Safety Report 16494826 (Version 2)
Quarter: 2019Q3

REPORT INFORMATION
  Report Type: Spontaneous
  Country: DE (occurrence: DE)
  Receive Date: 20190628
  Receipt Date: 20190905
  Transmission Date: 20191004
  Serious: Yes (Other)
  Sender: FDA-Public Use
  Company Number: DE-ASTRAZENECA-2019SE91399

PATIENT
  Age: 40 Year
  Sex: Female
  Weight: 84 kg

DRUGS (13)
  1. TOLPERISON [Concomitant]
     Active Substance: TOLPERISONE HYDROCHLORIDE
     Route: 048
     Dates: start: 20110409, end: 20110516
  2. PROMETHAZINE [Suspect]
     Active Substance: PROMETHAZINE HYDROCHLORIDE
     Indication: RESTLESSNESS
     Route: 048
     Dates: start: 2011, end: 20111124
  3. BETAMETHASON [Concomitant]
     Active Substance: BETAMETHASONE
     Indication: MATERNAL THERAPY TO ENHANCE FOETAL LUNG MATURITY
     Route: 030
     Dates: start: 20111120, end: 20111121
  4. IBUPROFEN. [Concomitant]
     Active Substance: IBUPROFEN
     Indication: TRIGEMINAL NEURALGIA
     Dosage: AS NEEDED
     Route: 048
     Dates: start: 20110927, end: 20111124
  5. SEROQUEL [Suspect]
     Active Substance: QUETIAPINE FUMARATE
     Indication: PSYCHOTIC DISORDER
     Route: 048
     Dates: start: 201105, end: 20111124
  6. RISPERDAL CONSTA [Suspect]
     Active Substance: RISPERIDONE
     Indication: PSYCHOTIC DISORDER
     Route: 030
     Dates: start: 20110401, end: 2011
  7. RISPERDAL CONSTA [Suspect]
     Active Substance: RISPERIDONE
     Indication: PSYCHOTIC DISORDER
     Route: 030
     Dates: start: 2011, end: 20111124
  8. PROMETHAZINE [Suspect]
     Active Substance: PROMETHAZINE HYDROCHLORIDE
     Indication: RESTLESSNESS
     Route: 048
     Dates: start: 20110527, end: 2011
  9. INSULIN [Concomitant]
     Active Substance: INSULIN NOS
     Indication: GESTATIONAL DIABETES
     Dates: start: 2011
  10. MELPERON [Concomitant]
     Active Substance: MELPERONE
     Indication: PSYCHOTIC DISORDER
     Route: 048
     Dates: start: 20110409, end: 20110516
  11. SEROQUEL [Suspect]
     Active Substance: QUETIAPINE FUMARATE
     Indication: PSYCHOTIC DISORDER
     Route: 048
     Dates: start: 20110409, end: 201105
  12. ACETYLSALICYLIC ACID [Concomitant]
     Active Substance: ASPIRIN
     Indication: PRE-ECLAMPSIA
     Route: 048
     Dates: end: 20111120
  13. CARBAMAZEPIN [Concomitant]
     Active Substance: CARBAMAZEPINE
     Indication: TRIGEMINAL NEURALGIA
     Route: 048
     Dates: start: 20110927, end: 20111124

REACTIONS (7)
  - Inappropriate schedule of product administration [Recovered/Resolved]
  - Trigeminal neuralgia [Unknown]
  - Premature delivery [Unknown]
  - Gestational diabetes [Recovered/Resolved]
  - Premature labour [Recovered/Resolved]
  - Maternal exposure during pregnancy [Recovered/Resolved]
  - Pre-eclampsia [Recovered/Resolved]

NARRATIVE: CASE EVENT DATE: 2011
